FAERS Safety Report 8499224-6 (Version None)
Quarter: 2012Q2

REPORT INFORMATION
  Report Type: 
  Country: None (occurrence: None)
  Receive Date: 20120405
  Receipt Date: 20101209
  Transmission Date: 20120825
  Serious: Yes (Other)
  Sender: FDA-Public Use
  Company Number: PHHY2010US84253

PATIENT
  Sex: Female

DRUGS (9)
  1. FORMIIDADEAN (FORMIIDADEAN) [Concomitant]
  2. FIBERCON (POLYCARBOPHIL CALCIUM) [Concomitant]
  3. CALCIUM CARBONATE [Concomitant]
  4. MYLANTA (ALUMINIUM HYDROXIDE GEL, DRIED, MAGNESIUM HYDROXIDE, SIMETICO [Concomitant]
  5. RECLAST [Suspect]
     Dates: start: 20101129
  6. BUPROPION HCL [Concomitant]
  7. LEVOTHYROXINE SODIUM [Concomitant]
  8. CLOZAPINE [Concomitant]
  9. PANTOPRAZOLE [Concomitant]

REACTIONS (6)
  - FATIGUE [None]
  - DIARRHOEA [None]
  - TOOTHACHE [None]
  - GASTROOESOPHAGEAL REFLUX DISEASE [None]
  - DENTAL DISCOMFORT [None]
  - PAIN IN JAW [None]
